FAERS Safety Report 11180524 (Version 1)
Quarter: 2015Q2

REPORT INFORMATION
  Report Type: Spontaneous
  Country: US (occurrence: US)
  Receive Date: 20150611
  Receipt Date: 20150611
  Transmission Date: 20150821
  Serious: No
  Sender: FDA-Public Use
  Company Number: US-PFIZER INC-2015191612

PATIENT
  Age: 83 Year
  Sex: Female
  Weight: 51.25 kg

DRUGS (6)
  1. PANTOPRAZOLE [Concomitant]
     Active Substance: PANTOPRAZOLE SODIUM
     Dosage: UNK
  2. TRIAMTERENE. [Concomitant]
     Active Substance: TRIAMTERENE
     Dosage: UNK
  3. AMLODIPINE [Concomitant]
     Active Substance: AMLODIPINE BESYLATE
     Dosage: UNK
  4. LISINOPRIL. [Concomitant]
     Active Substance: LISINOPRIL
     Dosage: UNK
  5. ATENOLOL. [Concomitant]
     Active Substance: ATENOLOL
     Indication: HYPERTENSION
     Dosage: UNK
  6. SUTENT [Suspect]
     Active Substance: SUNITINIB MALATE
     Indication: RENAL CANCER
     Dosage: 25 MG, ONCE DAILY, 28 DAYS ON AND 2 WEEKS OFF
     Dates: start: 2008

REACTIONS (9)
  - Peripheral swelling [Unknown]
  - Fatigue [Unknown]
  - Blood cholesterol abnormal [Unknown]
  - Dyspepsia [Unknown]
  - Blister [Recovered/Resolved]
  - Gastrooesophageal reflux disease [Unknown]
  - Diarrhoea [Unknown]
  - Asthenia [Unknown]
  - Thyroid disorder [Unknown]
